FAERS Safety Report 8143924-4 (Version None)
Quarter: 2012Q1

REPORT INFORMATION
  Report Type: 
  Country: None (occurrence: None)
  Receive Date: 20120217
  Receipt Date: 20120206
  Transmission Date: 20120608
  Serious: Yes (Death)
  Sender: FDA-Public Use
  Company Number: US-MYLANLABS-2012S1002924

PATIENT
  Age: 41 Year
  Sex: Male
  Weight: 116.12 kg

DRUGS (2)
  1. FENTANYL [Suspect]
     Indication: BACK PAIN
  2. ALPRAZOLAM [Suspect]

REACTIONS (1)
  - TOXICITY TO VARIOUS AGENTS [None]
